FAERS Safety Report 20165356 (Version 1)
Quarter: 2021Q4

REPORT INFORMATION
  Report Type: Spontaneous
  Country: None (occurrence: IT)
  Receive Date: 20211209
  Receipt Date: 20211209
  Transmission Date: 20220304
  Serious: Yes (Death)
  Sender: FDA-Public Use
  Company Number: IT-AKCEA THERAPEUTICS, INC.-2021IS001142

PATIENT

DRUGS (2)
  1. TEGSEDI [Suspect]
     Active Substance: INOTERSEN SODIUM
     Indication: Hereditary neuropathic amyloidosis
     Route: 058
  2. DEVICE [Suspect]
     Active Substance: DEVICE

REACTIONS (2)
  - Pleural effusion [Fatal]
  - Pleural adhesion [Fatal]
